FAERS Safety Report 16559630 (Version 1)
Quarter: 2019Q3

REPORT INFORMATION
  Report Type: Spontaneous
  Country: US (occurrence: US)
  Receive Date: 20190710
  Receipt Date: 20190710
  Transmission Date: 20191004
  Serious: Yes (Death)
  Sender: FDA-Public Use
  Company Number: None

PATIENT
  Age: 66 Year
  Sex: Male

DRUGS (1)
  1. LORTAB [Suspect]
     Active Substance: ACETAMINOPHEN\HYDROCODONE BITARTRATE
     Indication: PAIN
     Dates: start: 20190125, end: 20190125

REACTIONS (3)
  - Iatrogenic injury [None]
  - Contraindicated product administered [None]
  - Documented hypersensitivity to administered product [None]

NARRATIVE: CASE EVENT DATE: 20190125
